FAERS Safety Report 4430949-5 (Version None)
Quarter: 2004Q3

REPORT INFORMATION
  Report Type: 
  Country: None (occurrence: None)
  Receive Date: 20040824
  Receipt Date: 20040819
  Transmission Date: 20050211
  Serious: Yes (Life-Threatening, Other)
  Sender: FDA-Public Use
  Company Number: 981106-008014401

PATIENT
  Age: 28 Day
  Sex: Female

DRUGS (2)
  1. MICONAZOLE [Suspect]
     Route: 049
  2. UNKNOWN [Concomitant]

REACTIONS (2)
  - SUFFOCATION FEELING [None]
  - THROAT TIGHTNESS [None]
